FAERS Safety Report 13140736 (Version 1)
Quarter: 2017Q1

REPORT INFORMATION
  Report Type: Spontaneous
  Country: US (occurrence: US)
  Receive Date: 20170123
  Receipt Date: 20170123
  Transmission Date: 20170428
  Serious: Yes (Death, Other)
  Sender: FDA-Public Use
  Company Number: US-MYLANLABS-2017M1003281

PATIENT

DRUGS (4)
  1. FENTANYL. [Concomitant]
     Active Substance: FENTANYL
     Indication: PAIN
     Dosage: 25 MICROG
     Route: 042
  2. MORPHINE [Suspect]
     Active Substance: MORPHINE
     Indication: PAIN
     Dosage: 4 MG
     Route: 042
  3. PETHIDINE [Concomitant]
     Active Substance: MEPERIDINE
     Indication: PAIN
     Dosage: 75 MG
     Route: 042
  4. MORPHINE [Suspect]
     Active Substance: MORPHINE
     Indication: ANALGESIC THERAPY
     Dosage: 1MG/ML, 3MG PER DEMAND DOSE, LOCKOUT OF 10 MIN AND A BASAL RATE OF 1MG/H
     Route: 065

REACTIONS (3)
  - Overdose [Fatal]
  - Medication error [Fatal]
  - Respiratory arrest [Fatal]
